FAERS Safety Report 15243009 (Version 1)
Quarter: 2018Q3

REPORT INFORMATION
  Report Type: Spontaneous
  Country: US (occurrence: US)
  Receive Date: 20180712
  Receipt Date: 20180712
  Transmission Date: 20181010
  Serious: Yes (Disabling)
  Sender: FDA-Public Use
  Company Number: None

PATIENT
  Age: 77 Year
  Sex: Female
  Weight: 66.22 kg

DRUGS (13)
  1. LASIX [Concomitant]
     Active Substance: FUROSEMIDE
  2. OMNIPAQUE [Suspect]
     Active Substance: IOHEXOL
     Indication: CONTRAST MEDIA DEPOSITION
     Dosage: ?          OTHER ROUTE:IV AND ORAL?
     Dates: start: 20180525
  3. IRBESARTAN. [Concomitant]
     Active Substance: IRBESARTAN
  4. VITAMIN D [Concomitant]
     Active Substance: CHOLECALCIFEROL
  5. METOPROLOL TARTRATE. [Concomitant]
     Active Substance: METOPROLOL TARTRATE
  6. MULTI VITAMIN [Concomitant]
     Active Substance: VITAMINS
  7. VITAMIN C [Concomitant]
     Active Substance: ASCORBIC ACID
  8. LEVOTHYROXINE. [Concomitant]
     Active Substance: LEVOTHYROXINE
  9. VITAMIN B12 [Concomitant]
     Active Substance: CYANOCOBALAMIN
  10. CALCIUM [Concomitant]
     Active Substance: CALCIUM
  11. HYDRALAZINE [Concomitant]
     Active Substance: HYDRALAZINE HYDROCHLORIDE
  12. MAGNESIUM [Concomitant]
     Active Substance: MAGNESIUM
  13. ELIQUIS [Concomitant]
     Active Substance: APIXABAN

REACTIONS (5)
  - Erythema [None]
  - Pain [None]
  - Dermatitis bullous [None]
  - Burning sensation [None]
  - Scab [None]

NARRATIVE: CASE EVENT DATE: 20180525
